FAERS Safety Report 7966654-8 (Version None)
Quarter: 2011Q4

REPORT INFORMATION
  Report Type: 
  Country: None (occurrence: None)
  Receive Date: 20111209
  Receipt Date: 20111201
  Transmission Date: 20120403
  Serious: No
  Sender: FDA-Public Use
  Company Number: US-BIOGENIDEC-2011BI041856

PATIENT
  Sex: Female

DRUGS (2)
  1. AVONEX [Concomitant]
     Indication: MULTIPLE SCLEROSIS
     Route: 030
     Dates: start: 20010810
  2. TYSABRI [Suspect]
     Indication: MULTIPLE SCLEROSIS
     Route: 042
     Dates: start: 20071001

REACTIONS (7)
  - CONFUSIONAL STATE [None]
  - MEDICAL DEVICE COMPLICATION [None]
  - FATIGUE [None]
  - DEVICE BREAKAGE [None]
  - ENDOMETRIOSIS [None]
  - BLADDER PROLAPSE [None]
  - DISTURBANCE IN ATTENTION [None]
